FAERS Safety Report 24609756 (Version 3)
Quarter: 2025Q3

REPORT INFORMATION
  Report Type: Spontaneous
  Country: US (occurrence: US)
  Receive Date: 20241112
  Receipt Date: 20250819
  Transmission Date: 20251021
  Serious: Yes (Hospitalization, Other)
  Sender: SANOFI AVENTIS
  Company Number: US-SA-2024SA323572

PATIENT
  Age: 59 Year
  Sex: Female

DRUGS (22)
  1. DUPIXENT [Suspect]
     Active Substance: DUPILUMAB
     Indication: Dermatitis atopic
     Dosage: 300 MG, QOW
     Route: 058
     Dates: start: 20241008
  2. ATORVASTATIN [Concomitant]
     Active Substance: ATORVASTATIN
  3. DICLOFENAC [Concomitant]
     Active Substance: DICLOFENAC
  4. DULOXETINE HYDROCHLORIDE [Concomitant]
     Active Substance: DULOXETINE HYDROCHLORIDE
  5. FLONASE ALLERGY RELIEF [Concomitant]
     Active Substance: FLUTICASONE PROPIONATE
  6. GABAPENTIN [Concomitant]
     Active Substance: GABAPENTIN
  7. HYDROXYCHLOROQUINE [Concomitant]
     Active Substance: HYDROXYCHLOROQUINE
  8. LEVOTHYROXINE [Concomitant]
     Active Substance: LEVOTHYROXINE
  9. MELOXICAM [Concomitant]
     Active Substance: MELOXICAM
  10. OMEPRAZOLE [Concomitant]
     Active Substance: OMEPRAZOLE
  11. PREMARIN [Concomitant]
     Active Substance: ESTROGENS, CONJUGATED
  12. TAMSULOSIN HYDROCHLORIDE [Concomitant]
     Active Substance: TAMSULOSIN HYDROCHLORIDE
  13. TRIAMCINOLONE [Concomitant]
     Active Substance: TRIAMCINOLONE
  14. TYLENOL [Concomitant]
     Active Substance: ACETAMINOPHEN
  15. VIMPAT [Concomitant]
     Active Substance: LACOSAMIDE
  16. VALACYCLOVIR [Concomitant]
     Active Substance: VALACYCLOVIR HYDROCHLORIDE
  17. VALACYCLOVIR [Concomitant]
     Active Substance: VALACYCLOVIR HYDROCHLORIDE
  18. BENADRYL ALLERGY [Concomitant]
     Active Substance: DIPHENHYDRAMINE HYDROCHLORIDE
  19. ASPIRIN [Concomitant]
     Active Substance: ASPIRIN
  20. SENNA [Concomitant]
     Active Substance: SENNOSIDES
  21. PREMASOL - SULFITE-FREE (AMINO ACID) [Concomitant]
     Active Substance: ALANINE\ARGININE\ASPARTIC ACID\CYSTEINE HYDROCHLORIDE\GLUTAMIC ACID\GLYCINE\HISTIDINE\ISOLEUCINE\LEU
  22. OTEZLA [Concomitant]
     Active Substance: APREMILAST

REACTIONS (15)
  - Knee arthroplasty [Not Recovered/Not Resolved]
  - Initial insomnia [Unknown]
  - Fatigue [Unknown]
  - Decreased appetite [Unknown]
  - Depression [Unknown]
  - Dry skin [Unknown]
  - Skin fissures [Unknown]
  - Skin haemorrhage [Unknown]
  - Skin exfoliation [Unknown]
  - Rash [Not Recovered/Not Resolved]
  - Scratch [Not Recovered/Not Resolved]
  - Dry skin [Not Recovered/Not Resolved]
  - Pruritus [Not Recovered/Not Resolved]
  - Sleep disorder due to a general medical condition [Not Recovered/Not Resolved]
  - Therapeutic product effect incomplete [Unknown]

NARRATIVE: CASE EVENT DATE: 20241001
